FAERS Safety Report 10501620 (Version 2)
Quarter: 2014Q4

REPORT INFORMATION
  Report Type: Spontaneous
  Country: CA (occurrence: CA)
  Receive Date: 20141007
  Receipt Date: 20141023
  Transmission Date: 20150528
  Serious: Yes (Death)
  Sender: FDA-Public Use
  Company Number: CA-PFIZER INC-2014273325

PATIENT
  Age: 50 Year
  Sex: Female
  Weight: 55 kg

DRUGS (1)
  1. CELEBREX [Suspect]
     Active Substance: CELECOXIB
     Indication: MYALGIA
     Dosage: 200 MG, 1X/DAY
     Route: 048

REACTIONS (4)
  - Malaise [Fatal]
  - Jaundice [Fatal]
  - Asthenia [Fatal]
  - Acute hepatic failure [Fatal]

NARRATIVE: CASE EVENT DATE: 2000
